FAERS Safety Report 25263697 (Version 1)
Quarter: 2025Q2

REPORT INFORMATION
  Report Type: Spontaneous
  Country: FR (occurrence: FR)
  Receive Date: 20250502
  Receipt Date: 20250502
  Transmission Date: 20250717
  Serious: Yes (Disabling)
  Sender: TEVA
  Company Number: None

PATIENT
  Age: 59 Year
  Sex: Female
  Weight: 96 kg

DRUGS (5)
  1. PROGESTERONE [Suspect]
     Active Substance: PROGESTERONE
     Indication: Endometriosis
     Dosage: 1/DAY / 21 DAYS/MONTH
     Route: 048
     Dates: start: 201110, end: 201208
  2. NOMEGESTROL ACETATE [Suspect]
     Active Substance: NOMEGESTROL ACETATE
     Indication: Endometriosis
     Dosage: 21 DAYS/MONTH;?SCORED TABLET
     Route: 048
     Dates: start: 200003, end: 200702
  3. CYPROTERONE ACETATE [Suspect]
     Active Substance: CYPROTERONE ACETATE
     Indication: Endometriosis
     Dosage: 25MG/DAY / 22 DAYS/MONTH
     Route: 048
     Dates: start: 201208, end: 201303
  4. CYPROTERONE ACETATE [Suspect]
     Active Substance: CYPROTERONE ACETATE
     Indication: Endometriosis
     Dosage: 1 TABLET PER DAY, 22 DAYS/MONTH;
     Route: 048
     Dates: start: 200901, end: 201110
  5. CHLORMADINONE ACETATE [Suspect]
     Active Substance: CHLORMADINONE ACETATE
     Indication: Endometriosis
     Dosage: 21 DAYS/MONTH
     Route: 048
     Dates: start: 200702, end: 200901

REACTIONS (1)
  - Meningioma [Recovered/Resolved with Sequelae]

NARRATIVE: CASE EVENT DATE: 20110401
